FAERS Safety Report 8979164 (Version 3)
Quarter: 2013Q1

REPORT INFORMATION
  Report Type: Spontaneous
  Country: US (occurrence: US)
  Receive Date: 20121221
  Receipt Date: 20130321
  Transmission Date: 20140127
  Serious: Yes (Death, Life-Threatening, Hospitalization, Disabling)
  Sender: FDA-Public Use
  Company Number: US-GLAXOSMITHKLINE-A1006212A

PATIENT
  Age: 57 Year
  Sex: Female
  Weight: 60 kg

DRUGS (12)
  1. FLOLAN [Suspect]
     Indication: PRODUCT USED FOR UNKNOWN INDICATION
     Dosage: 30.2NGKM CONTINUOUS
     Route: 042
     Dates: start: 20120208
  2. VITAMIN B COMPLEX [Concomitant]
  3. CALCIUM CARBONATE + VITAMIN D [Concomitant]
  4. LASIX [Concomitant]
  5. MULTIVITAMIN [Concomitant]
  6. BACTROBAN [Concomitant]
  7. ZOFRAN [Concomitant]
  8. OXYGEN [Concomitant]
  9. KLOR-CON M [Concomitant]
  10. REVATIO [Concomitant]
  11. RETIN A [Concomitant]
  12. COUMADIN [Concomitant]

REACTIONS (8)
  - Pneumonia influenzal [Fatal]
  - Acute respiratory failure [Unknown]
  - Cardiac arrest [Unknown]
  - Dyspnoea [Unknown]
  - Diarrhoea [Unknown]
  - Cough [Unknown]
  - Chills [Unknown]
  - Pyrexia [Unknown]
